FAERS Safety Report 13769709 (Version 1)
Quarter: 2017Q3

REPORT INFORMATION
  Report Type: Spontaneous
  Country: AU (occurrence: AU)
  Receive Date: 20170719
  Receipt Date: 20170719
  Transmission Date: 20171127
  Serious: Yes (Death)
  Sender: FDA-Public Use
  Company Number: AU-PFIZER INC-3083048

PATIENT
  Age: 61 Year
  Sex: Female
  Weight: 105 kg

DRUGS (3)
  1. DEXAMETHASONE. [Concomitant]
     Active Substance: DEXAMETHASONE
     Indication: ANTIEMETIC SUPPORTIVE CARE
     Dosage: 8 MG, UNK
     Route: 042
     Dates: start: 20150909
  2. PALONOSETRON [Concomitant]
     Active Substance: PALONOSETRON
     Indication: ANTIEMETIC SUPPORTIVE CARE
     Dosage: 250 UG, UNK
     Route: 042
     Dates: start: 20150909
  3. OXALIPLATIN. [Suspect]
     Active Substance: OXALIPLATIN
     Indication: COLORECTAL CANCER
     Dosage: 160 MG, UNK
     Route: 041
     Dates: start: 20150909, end: 20150909

REACTIONS (5)
  - Dyspnoea [Fatal]
  - Loss of consciousness [Fatal]
  - Pulse absent [Fatal]
  - Blood pressure immeasurable [Fatal]
  - Throat tightness [Fatal]

NARRATIVE: CASE EVENT DATE: 20150909
